FAERS Safety Report 6596024-9 (Version None)
Quarter: 2010Q1

REPORT INFORMATION
  Report Type: 
  Country: None (occurrence: None)
  Receive Date: 20100223
  Receipt Date: 20100215
  Transmission Date: 20100710
  Serious: Yes (Death)
  Sender: FDA-Public Use
  Company Number: PHHY2009DE34328

PATIENT
  Sex: Male
  Weight: 80 kg

DRUGS (2)
  1. EXJADE [Suspect]
     Indication: MYELODYSPLASTIC SYNDROME
     Dosage: 1000 MG DAILY
     Route: 048
     Dates: start: 20080801, end: 20090501
  2. EXJADE [Suspect]
     Indication: HAEMOSIDEROSIS

REACTIONS (5)
  - ABDOMINAL DISTENSION [None]
  - CONSTIPATION [None]
  - EYE SWELLING [None]
  - NAUSEA [None]
  - SEPSIS [None]
